FAERS Safety Report 24640040 (Version 2)
Quarter: 2025Q1

REPORT INFORMATION
  Report Type: Spontaneous
  Country: IE (occurrence: IE)
  Receive Date: 20241120
  Receipt Date: 20250204
  Transmission Date: 20250409
  Serious: Yes (Hospitalization, Other)
  Sender: AMGEN
  Company Number: IE-JNJFOC-20240939586

PATIENT
  Age: 56 Year
  Sex: Female
  Weight: 120 kg

DRUGS (25)
  1. TRASTUZUMAB [Suspect]
     Active Substance: TRASTUZUMAB
     Indication: Colon cancer
     Route: 040
     Dates: start: 20240705, end: 20240726
  2. TRASTUZUMAB [Suspect]
     Active Substance: TRASTUZUMAB
     Route: 040
     Dates: start: 20240726, end: 20240901
  3. TRASTUZUMAB [Suspect]
     Active Substance: TRASTUZUMAB
     Route: 040
     Dates: start: 20240902, end: 20240916
  4. TRASTUZUMAB [Suspect]
     Active Substance: TRASTUZUMAB
     Route: 040
     Dates: start: 20240705, end: 20240725
  5. LOPERAMIDE HYDROCHLORIDE [Suspect]
     Active Substance: LOPERAMIDE HYDROCHLORIDE
     Indication: Prophylaxis against diarrhoea
     Route: 048
     Dates: start: 20240705
  6. FLUOROURACIL [Suspect]
     Active Substance: FLUOROURACIL
     Indication: Colon cancer
     Route: 040
     Dates: start: 20240705, end: 20240802
  7. FLUOROURACIL [Suspect]
     Active Substance: FLUOROURACIL
     Route: 040
     Dates: start: 20240705, end: 20240802
  8. FLUOROURACIL [Suspect]
     Active Substance: FLUOROURACIL
     Route: 040
     Dates: start: 20240705, end: 20240802
  9. FLUOROURACIL [Suspect]
     Active Substance: FLUOROURACIL
     Route: 040
     Dates: start: 20240902, end: 20240916
  10. FLUOROURACIL [Suspect]
     Active Substance: FLUOROURACIL
     Route: 040
     Dates: start: 20240902, end: 20240916
  11. OXALIPLATIN [Suspect]
     Active Substance: OXALIPLATIN
     Indication: Colon cancer
     Route: 040
     Dates: start: 20240705, end: 20240802
  12. OXALIPLATIN [Suspect]
     Active Substance: OXALIPLATIN
     Route: 040
     Dates: start: 20240902, end: 20240916
  13. OXALIPLATIN [Suspect]
     Active Substance: OXALIPLATIN
     Route: 065
     Dates: start: 20240707, end: 20240802
  14. TUCATINIB [Suspect]
     Active Substance: TUCATINIB
     Indication: Colon cancer
     Route: 048
     Dates: start: 20240705, end: 20240813
  15. TUCATINIB [Suspect]
     Active Substance: TUCATINIB
     Route: 048
     Dates: start: 20240705, end: 20240818
  16. TUCATINIB [Suspect]
     Active Substance: TUCATINIB
     Dosage: 200 MG BID FREQUENCY: 1 FREQUENCY TIME: 12 FREQUENCY TIME UNIT: HOURS
     Route: 048
     Dates: start: 20240902, end: 20240916
  17. TUCATINIB [Suspect]
     Active Substance: TUCATINIB
     Dosage: 250 MG BID FREQUENCY: 1 FREQUENCY TIME: 12 FREQUENCY TIME UNIT: HOURS
     Route: 048
     Dates: start: 20240726, end: 20240818
  18. LEUCOVORIN CALCIUM [Suspect]
     Active Substance: LEUCOVORIN CALCIUM
     Indication: Colon cancer
     Route: 040
     Dates: start: 20240705, end: 20240802
  19. LEUCOVORIN CALCIUM [Suspect]
     Active Substance: LEUCOVORIN CALCIUM
     Route: 040
     Dates: start: 20240902, end: 20240916
  20. METFORMIN [Concomitant]
     Active Substance: METFORMIN HYDROCHLORIDE
     Indication: Type 2 diabetes mellitus
     Route: 065
     Dates: start: 20210713, end: 20240813
  21. METFORMIN [Concomitant]
     Active Substance: METFORMIN HYDROCHLORIDE
     Indication: Restless legs syndrome
     Route: 065
     Dates: start: 20240923, end: 20240925
  22. METFORMIN [Concomitant]
     Active Substance: METFORMIN HYDROCHLORIDE
     Route: 065
     Dates: start: 20210713, end: 20240925
  23. LOSARTAN [Concomitant]
     Active Substance: LOSARTAN
     Indication: Product used for unknown indication
     Route: 065
     Dates: start: 2014, end: 20240814
  24. ESCITALOPRAM [Concomitant]
     Active Substance: ESCITALOPRAM OXALATE
     Indication: Depression
     Route: 065
     Dates: start: 2018, end: 20240814
  25. ESCITALOPRAM [Concomitant]
     Active Substance: ESCITALOPRAM OXALATE
     Route: 048
     Dates: start: 2018, end: 20241125

REACTIONS (8)
  - Acute kidney injury [Recovered/Resolved with Sequelae]
  - Blood creatinine increased [Unknown]
  - Diarrhoea [Unknown]
  - Gastrointestinal stoma output increased [Recovered/Resolved with Sequelae]
  - Oliguria [Unknown]
  - Dehydration [Recovering/Resolving]
  - Blood sodium decreased [Recovered/Resolved with Sequelae]
  - Hyponatraemia [Recovering/Resolving]

NARRATIVE: CASE EVENT DATE: 20240813
